FAERS Safety Report 19591404 (Version 4)
Quarter: 2022Q3

REPORT INFORMATION
  Report Type: Spontaneous
  Country: US (occurrence: US)
  Receive Date: 20210721
  Receipt Date: 20220913
  Transmission Date: 20221027
  Serious: No
  Sender: FDA-Public Use
  Company Number: US-PFIZER INC-2021886145

PATIENT
  Age: 82 Year
  Sex: Female

DRUGS (1)
  1. XELJANZ XR [Suspect]
     Active Substance: TOFACITINIB CITRATE
     Dosage: 22 MG, DAILY
     Route: 048

REACTIONS (2)
  - Visual impairment [Unknown]
  - Product prescribing error [Unknown]
